FAERS Safety Report 18053767 (Version 4)
Quarter: 2021Q3

REPORT INFORMATION
  Report Type: Spontaneous
  Country: US (occurrence: US)
  Receive Date: 20200722
  Receipt Date: 20210803
  Transmission Date: 20211014
  Serious: Yes (Other)
  Sender: FDA-Public Use
  Company Number: US-TEVA-2020-US-1804235

PATIENT
  Sex: Female

DRUGS (75)
  1. FLUTICASONE. [Concomitant]
     Active Substance: FLUTICASONE
     Indication: HYPERSENSITIVITY
     Dosage: 120 DOSES
     Route: 045
     Dates: start: 20100126, end: 20120524
  2. CEPHALEXIN 250 MG [Concomitant]
     Indication: ANTIBIOTIC THERAPY
     Dosage: 250MG
     Dates: start: 20100126, end: 20111117
  3. PHENDIMETRAZINE 105MG [Concomitant]
     Active Substance: PHENDIMETRAZINE
     Indication: INCREASED APPETITE
     Dosage: 105MG
     Dates: start: 20100701, end: 20101001
  4. CETRIZINE 10MG [Concomitant]
     Indication: HYPERSENSITIVITY
     Dates: start: 20110203, end: 20110707
  5. MELOXICAM 7.5MG [Concomitant]
     Active Substance: MELOXICAM
     Indication: ARTHRALGIA
     Dosage: 7.5MG
     Dates: start: 20110329, end: 20110615
  6. METRONIDAZOLE 500MG [Concomitant]
     Active Substance: METRONIDAZOLE
     Indication: ANTIBIOTIC THERAPY
     Dosage: 500MG
     Dates: start: 20120109
  7. SPIRONOLACTONE. [Concomitant]
     Active Substance: SPIRONOLACTONE
     Dosage: 50 MILLIGRAM DAILY;
     Route: 048
     Dates: end: 20180719
  8. VALSARTAN/HYDROCHLORTHIAZIDE MACLEODS [Suspect]
     Active Substance: HYDROCHLOROTHIAZIDE\VALSARTAN
     Indication: MALIGNANT HYPERTENSIVE HEART DISEASE
     Dosage: 1 DOSAGE FORMS DAILY;
     Route: 048
     Dates: start: 20121205
  9. TOPIRAMATE. [Concomitant]
     Active Substance: TOPIRAMATE
     Indication: SEIZURE
     Dosage: 50MG
     Dates: start: 20110709, end: 20180307
  10. OMEPRAZOLE 20MG [Concomitant]
     Active Substance: OMEPRAZOLE
     Indication: DYSPEPSIA
     Dosage: 20MG
     Dates: start: 20100610
  11. CARISOPRODOL 350MG [Concomitant]
     Active Substance: CARISOPRODOL
     Indication: MUSCLE SPASMS
     Dosage: 350MG
     Dates: start: 20100624, end: 20120502
  12. LISINOPRIL. [Concomitant]
     Active Substance: LISINOPRIL
     Indication: HYPERTENSION
     Dosage: 20MG
     Dates: start: 20110110, end: 20110119
  13. DOXYCYCLINE. [Concomitant]
     Active Substance: DOXYCYCLINE
  14. CLONAZEPAM 1MG [Concomitant]
     Active Substance: CLONAZEPAM
     Route: 048
     Dates: start: 2018
  15. TRAZODONE HYDROCHLORIDE. [Concomitant]
     Active Substance: TRAZODONE HYDROCHLORIDE
     Dosage: 50 MILLIGRAM DAILY;
     Dates: start: 20180503
  16. ATORVASTATIN [Concomitant]
     Active Substance: ATORVASTATIN
     Indication: TYPE V HYPERLIPIDAEMIA
  17. ROSUVASTATIN CALCIUM. [Concomitant]
     Active Substance: ROSUVASTATIN CALCIUM
     Dosage: 10 MILLIGRAM DAILY;
     Route: 048
  18. BIOTIN [Concomitant]
     Active Substance: BIOTIN
     Dosage: 10000 MICROGRAM DAILY;
     Route: 048
  19. THEOPHYLLINE ER 300MG [Concomitant]
     Dosage: 300 MILLIGRAM DAILY; EXTENDED RELEASE, WITH FOOD
     Route: 048
  20. DULOXETINE HYDROCHLORIDE. [Concomitant]
     Active Substance: DULOXETINE HYDROCHLORIDE
     Dosage: 60 MILLIGRAM DAILY;
     Route: 048
  21. DIOVAN HCT [Suspect]
     Active Substance: HYDROCHLOROTHIAZIDE\VALSARTAN
     Indication: MALIGNANT HYPERTENSIVE HEART DISEASE
     Dosage: 1 DOSAGE FORMS DAILY; 160/12.5MG
     Route: 048
     Dates: start: 20100302, end: 20120502
  22. FLUCONAZOLE 150MG [Concomitant]
     Active Substance: FLUCONAZOLE
     Indication: ANTIFUNGAL TREATMENT
     Dosage: 150MG
     Dates: start: 20101101, end: 20120827
  23. WELCHOL [Concomitant]
     Active Substance: COLESEVELAM HYDROCHLORIDE
     Indication: BLOOD CHOLESTEROL ABNORMAL
     Dosage: 375GRAM PACKET
     Dates: start: 20110203
  24. BUSPIRONE HYDROCHLORIDE 10MG [Concomitant]
     Dosage: 20 MILLIGRAM DAILY;
     Route: 048
  25. HYDROXYZINE HCL 25MG [Concomitant]
     Dosage: 25MG
  26. ALPRAZOLAM 1MG [Concomitant]
     Active Substance: ALPRAZOLAM
     Indication: ANXIETY
     Dosage: 2 MILLIGRAM DAILY;
     Dates: start: 20100302, end: 20121024
  27. PANTOPRAZOLE 40MG [Concomitant]
     Active Substance: PANTOPRAZOLE SODIUM
     Indication: GASTROOESOPHAGEAL REFLUX DISEASE
     Dosage: 40 MILLIGRAM DAILY; DELAYED RELEASE
     Route: 048
     Dates: start: 20101022, end: 20120727
  28. CLARITHROMYCIN 500MG [Concomitant]
     Active Substance: CLARITHROMYCIN
     Indication: ANTIBIOTIC THERAPY
     Dosage: 500MG
     Dates: start: 20110329
  29. CYCLOBENZAPRINE 5MG [Concomitant]
     Active Substance: CYCLOBENZAPRINE
     Indication: MUSCLE SPASMS
     Dosage: 5MG
     Dates: start: 20110705, end: 20120726
  30. KETOCONAZOLE 2% [Concomitant]
     Active Substance: KETOCONAZOLE
     Dosage: AS REQUIRED
     Route: 061
  31. ROSUVASTATIN CALCIUM. [Concomitant]
     Active Substance: ROSUVASTATIN CALCIUM
     Dosage: 40 MILLIGRAM DAILY;
     Route: 048
  32. SERTRALINE HYDROCHLORIDE 50MG [Concomitant]
     Dosage: 50 MILLIGRAM DAILY;
     Route: 048
  33. AMLODIPINE BESYLATE 5MG [Concomitant]
     Active Substance: AMLODIPINE BESYLATE
     Dosage: 5 MILLIGRAM DAILY;
     Route: 048
     Dates: end: 2018
  34. ZITHROMAX Z [Concomitant]
     Dosage: 250 MILLIGRAM DAILY;
     Route: 048
  35. TOPIRAMATE. [Concomitant]
     Active Substance: TOPIRAMATE
     Indication: HEADACHE
     Dates: start: 20110709, end: 20180307
  36. LIDOCAINE W/PRILOCAINE [Concomitant]
     Active Substance: LIDOCAINE\PRILOCAINE
     Indication: SKIN DISORDER
     Dosage: 2.5%
     Dates: start: 20100126, end: 20110709
  37. FUROSEMIDE 40MG [Concomitant]
     Active Substance: FUROSEMIDE
     Indication: FLUID RETENTION
     Dosage: 80 MILLIGRAM DAILY;
     Route: 048
     Dates: start: 20100211, end: 20120524
  38. LANSOPRAZOLE 30MG [Concomitant]
     Active Substance: LANSOPRAZOLE
     Indication: DYSPEPSIA
     Dosage: 30MG
     Dates: start: 20100211, end: 20100726
  39. POTASSIUM CHLOR ER [Concomitant]
     Indication: BLOOD POTASSIUM ABNORMAL
     Dosage: EXTENDED RELEASE
     Route: 048
     Dates: start: 20101022, end: 20110921
  40. NYSTATIN. [Concomitant]
     Active Substance: NYSTATIN
     Indication: FUNGAL INFECTION
     Dates: start: 20110413
  41. TERCONAZOLE 0.8% [Concomitant]
     Indication: FUNGAL INFECTION
     Dosage: 0.8%
     Dates: start: 20110426, end: 20120105
  42. TRAZODONE HYDROCHLORIDE. [Concomitant]
     Active Substance: TRAZODONE HYDROCHLORIDE
     Dosage: 100 MILLIGRAM DAILY; BED TIME
     Dates: start: 2018
  43. ROSUVASTATIN CALCIUM. [Concomitant]
     Active Substance: ROSUVASTATIN CALCIUM
     Dosage: 11.4286 MILLIGRAM DAILY;
     Route: 048
  44. ROSUVASTATIN CALCIUM. [Concomitant]
     Active Substance: ROSUVASTATIN CALCIUM
     Route: 048
  45. ALBUTEROL SULFATE 2.5MG/3ML [Concomitant]
     Dosage: 2.5MG/3ML, .083% NEBULIZATION SOLUTION THRICE A DAY
     Route: 055
  46. HYDRALAZINE HYDROCHLORIDE 50MG [Concomitant]
     Dosage: 100 MILLIGRAM DAILY;
     Route: 048
  47. VALSARTAN/HYDROCHLORTHIAZIDE 160/12.5MG SANDOZ [Suspect]
     Active Substance: HYDROCHLOROTHIAZIDE\VALSARTAN
     Indication: MALIGNANT HYPERTENSIVE HEART DISEASE
     Dosage: 1 DOSAGE FORMS DAILY; 160/12.5MG?VALSARTAN/HYDROCHLORTHIAZIDE 160/12.5MG SANDOZ
     Route: 048
     Dates: start: 20121205
  48. VALSARTAN/HYDROCHLORTHIAZIDE SOLCO [Suspect]
     Active Substance: HYDROCHLOROTHIAZIDE\VALSARTAN
     Dosage: 1 DOSAGE FORMS DAILY; 160/25MG
     Route: 048
     Dates: start: 201804
  49. DIOVAN HCT [Suspect]
     Active Substance: HYDROCHLOROTHIAZIDE\VALSARTAN
     Indication: HYPERTENSION
     Dosage: 1 DOSAGE FORMS DAILY; 160/25MG
     Route: 048
  50. TRIAMCINOLONE 0.1% [Concomitant]
     Active Substance: TRIAMCINOLONE
     Dosage: 0.1%
  51. HYDROCODONE W/ACETAMINOPHEN 10/650MG [Concomitant]
     Indication: ANALGESIC THERAPY
     Dosage: 10/650MG
     Dates: start: 20100126, end: 20121121
  52. METFORMIN 500MG [Concomitant]
     Active Substance: METFORMIN HYDROCHLORIDE
     Indication: DIABETES MELLITUS
     Dosage: 500MG
     Dates: start: 20100211, end: 20120524
  53. LEVAQUIN [Concomitant]
     Active Substance: LEVOFLOXACIN
     Indication: ANTIBIOTIC THERAPY
     Dates: start: 20101108
  54. ROSUVASTATIN CALCIUM. [Concomitant]
     Active Substance: ROSUVASTATIN CALCIUM
     Dosage: 20 MILLIGRAM DAILY;
     Route: 048
  55. PRENATAL [Concomitant]
     Active Substance: VITAMINS
     Dosage: 1 DOSAGE FORMS DAILY;
     Route: 048
  56. SPIRONOLACTONE. [Concomitant]
     Active Substance: SPIRONOLACTONE
     Dosage: 25 MILLIGRAM DAILY;
     Route: 048
     Dates: end: 20180511
  57. LOVAZA CAPSULES [Concomitant]
     Indication: BLOOD CHOLESTEROL ABNORMAL
     Dates: start: 20110203, end: 20110426
  58. HYDROCODONE W/ACETAMINOPHEN 10/650MG [Concomitant]
     Dosage: 10/325MG, EVERY 6 HOURS
     Route: 048
  59. PRILOSEC [Concomitant]
     Active Substance: OMEPRAZOLE MAGNESIUM
     Indication: DYSPEPSIA
     Dosage: 20MG
     Dates: start: 20100514
  60. VOLTAREN [Concomitant]
     Active Substance: DICLOFENAC SODIUM
     Indication: ANALGESIC THERAPY
     Dates: start: 20111228, end: 20120126
  61. CLONAZEPAM 1MG [Concomitant]
     Active Substance: CLONAZEPAM
     Dosage: 1 MILLIGRAM DAILY; DISINTEGRATING TABLET
     Route: 048
     Dates: start: 20180505
  62. CYANOCOBALAMIN. [Concomitant]
     Active Substance: CYANOCOBALAMIN
     Dosage: 1000MICROGRAM/ML
  63. AMITRIPTYLINE HYDROCHLORIDE 1MG [Concomitant]
     Dosage: 25 MILLIGRAM DAILY;
     Route: 048
  64. KETOCONAZOLE 2% [Concomitant]
     Active Substance: KETOCONAZOLE
     Dosage: APPLY TWICE AS REQUIRED
  65. VALSARTAN/HYDROCHLORTHIAZIDE 160/12.5MG ACTAVIS [Suspect]
     Active Substance: HYDROCHLOROTHIAZIDE\VALSARTAN
     Indication: MALIGNANT HYPERTENSIVE HEART DISEASE
     Dosage: 1 DOSAGE FORMS DAILY; 160/12.5 MG
     Route: 048
     Dates: start: 20121205
  66. VALSARTAN/HYDROCHLORTHIAZIDE SOLCO [Suspect]
     Active Substance: HYDROCHLOROTHIAZIDE\VALSARTAN
     Indication: MALIGNANT HYPERTENSIVE HEART DISEASE
     Dosage: 1 DOSAGE FORMS DAILY; 160/12.5MG
     Route: 048
     Dates: start: 20121205
  67. VALSARTAN/HYDROCHLOROTHIAZIDE [Suspect]
     Active Substance: HYDROCHLOROTHIAZIDE\VALSARTAN
     Indication: MALIGNANT HYPERTENSIVE HEART DISEASE
     Dosage: 1 DOSAGE FORMS DAILY; 320/25MG
     Route: 048
     Dates: start: 20170330
  68. VALSARTAN/HYDROCHLOROTHIAZIDE [Suspect]
     Active Substance: HYDROCHLOROTHIAZIDE\VALSARTAN
     Dosage: 1 DOSAGE FORMS DAILY; 12.5MG
     Route: 048
     Dates: start: 20170410
  69. PRENATAL [Concomitant]
     Active Substance: VITAMINS
  70. GUAIFENESIN. [Concomitant]
     Active Substance: GUAIFENESIN
     Dosage: FOR CONGESTION 100MG/5ML
     Dates: start: 20110126
  71. METRONIDAZOLE. [Concomitant]
     Active Substance: METRONIDAZOLE
     Indication: ANTIBIOTIC THERAPY
     Dosage: 500MG
  72. PROMETHAZINE 25MG [Concomitant]
     Dosage: 2 DOSAGE FORMS DAILY; AS SEDATIBVE, 25MG
     Route: 048
     Dates: start: 20111212, end: 20111212
  73. TIZANIDINE HYDROCHLORIDE 4MG [Concomitant]
     Dosage: EVERY 8 HOURS 4M AS REQUIRED
     Route: 048
  74. VITAMIN E [Concomitant]
     Active Substance: .ALPHA.-TOCOPHEROL
     Dosage: 1 DOSAGE FORMS DAILY;
     Route: 048
  75. VALSARTAN/HYDROCHLORTHIAZIDE 160/12.5MG AUROBINDO [Suspect]
     Active Substance: HYDROCHLOROTHIAZIDE\VALSARTAN
     Indication: MALIGNANT HYPERTENSIVE HEART DISEASE
     Dosage: 1 DOSAGE FORMS DAILY; 160/12.5MG?VALSARTAN/HYDROCHLORTHIAZIDE 160/12.5MG AUROBINDO
     Route: 048
     Dates: start: 20121205

REACTIONS (4)
  - Renal neoplasm [Not Recovered/Not Resolved]
  - Sleep disorder [Unknown]
  - Nerve injury [Unknown]
  - Renal hamartoma [Not Recovered/Not Resolved]
